FAERS Safety Report 6654178-X (Version None)
Quarter: 2010Q1

REPORT INFORMATION
  Report Type: 
  Country: None (occurrence: None)
  Receive Date: 20100326
  Receipt Date: 20100319
  Transmission Date: 20100710
  Serious: Yes (Other)
  Sender: FDA-Public Use
  Company Number: US-AMGEN-QUU397968

PATIENT
  Sex: Female
  Weight: 53.6 kg

DRUGS (8)
  1. NEUPOGEN [Suspect]
     Indication: CHEMOTHERAPY
     Route: 058
     Dates: start: 20100205
  2. CARBOPLATIN [Suspect]
     Dates: start: 20100204, end: 20100313
  3. EMEND [Suspect]
     Dates: start: 20100204, end: 20100313
  4. TAXOL [Concomitant]
     Dates: start: 20100204, end: 20100313
  5. COUMADIN [Concomitant]
     Dates: start: 20010101
  6. CARDIAC MEDICATION NOS [Concomitant]
  7. DEXAMETHASONE [Concomitant]
     Dates: start: 20100203, end: 20100312
  8. ZOFRAN [Concomitant]
     Dates: start: 20100204, end: 20100313

REACTIONS (2)
  - INTERNATIONAL NORMALISED RATIO ABNORMAL [None]
  - THROMBOPHLEBITIS [None]
